FAERS Safety Report 11748310 (Version 14)
Quarter: 2017Q3

REPORT INFORMATION
  Report Type: Report from Study
  Country: US (occurrence: US)
  Receive Date: 20151117
  Receipt Date: 20170807
  Transmission Date: 20171127
  Serious: Yes (Death, Hospitalization, Other)
  Sender: FDA-Public Use
  Company Number: US-ACTELION-A-US2015-124539

PATIENT
  Age: 55 Year
  Sex: Male

DRUGS (13)
  1. LASIX [Concomitant]
     Active Substance: FUROSEMIDE
     Dosage: 80 MG, BID
  2. ALDACTONE [Concomitant]
     Active Substance: SPIRONOLACTONE
  3. TREPROSTINIL DIOLAMIN [Suspect]
     Active Substance: TREPROSTINIL DIOLAMINE
     Indication: PRODUCT USED FOR UNKNOWN INDICATION
     Route: 065
  4. SILDENAFIL. [Concomitant]
     Active Substance: SILDENAFIL
     Dosage: 20 MG, TID
     Route: 048
  5. SILDENAFIL. [Concomitant]
     Active Substance: SILDENAFIL
     Dosage: 40 MG, TID
     Route: 048
  6. OPSUMIT [Suspect]
     Active Substance: MACITENTAN
     Indication: PULMONARY ARTERIAL HYPERTENSION
     Dosage: 10 MG, QD
     Route: 048
     Dates: end: 20170609
  7. VENTAVIS [Suspect]
     Active Substance: ILOPROST
     Dosage: UNK, 6-7X/DAILY
     Route: 055
  8. REMODULIN [Concomitant]
     Active Substance: TREPROSTINIL
     Dosage: 43 NG/KG, PER MIN
  9. COUMADIN [Concomitant]
     Active Substance: WARFARIN SODIUM
  10. DIGOXIN. [Concomitant]
     Active Substance: DIGOXIN
     Dosage: 0.125 MG, QD
     Route: 048
  11. VENTAVIS [Suspect]
     Active Substance: ILOPROST
     Indication: PULMONARY ARTERIAL HYPERTENSION
     Dosage: 5 MCG, 6-9X/DAILY
     Route: 055
     Dates: start: 20140910
  12. DILTIAZEM. [Concomitant]
     Active Substance: DILTIAZEM
     Dosage: 60 MG, QID
  13. LASIX [Concomitant]
     Active Substance: FUROSEMIDE
     Dosage: 120 MG, BID
     Route: 048

REACTIONS (24)
  - Cardiac arrest [Fatal]
  - Splenic haematoma [Unknown]
  - Asthenia [Unknown]
  - Hyponatraemia [Unknown]
  - Acute respiratory failure [Recovering/Resolving]
  - Drug intolerance [Unknown]
  - Pulmonary hypertension [Fatal]
  - Acute kidney injury [Unknown]
  - Chest pain [Unknown]
  - Oedema peripheral [Unknown]
  - Right ventricular failure [Fatal]
  - Condition aggravated [Unknown]
  - Dyspnoea [Unknown]
  - Ascites [Unknown]
  - Paracentesis [Unknown]
  - Dizziness [Unknown]
  - Cardiogenic shock [Fatal]
  - Disease progression [Fatal]
  - Somnolence [Unknown]
  - Diarrhoea [Unknown]
  - Abdominal discomfort [Unknown]
  - Concomitant disease aggravated [Fatal]
  - Flatulence [Unknown]
  - Hypotension [Fatal]

NARRATIVE: CASE EVENT DATE: 20170329
